FAERS Safety Report 4808256-8 (Version None)
Quarter: 2005Q4

REPORT INFORMATION
  Report Type: 
  Country: None (occurrence: None)
  Receive Date: 20051021
  Receipt Date: 20020809
  Transmission Date: 20060501
  Serious: No
  Sender: FDA-Public Use
  Company Number: FR_020801319

PATIENT
  Age: 67 Year
  Sex: Female

DRUGS (4)
  1. ZYPREXA [Suspect]
     Indication: DELIRIUM
     Dosage: 20 MG/DAY
     Dates: start: 20011224
  2. TEGRETOL [Concomitant]
  3. NOCTRAN [Concomitant]
  4. DUPHALAC [Concomitant]

REACTIONS (5)
  - CONDITION AGGRAVATED [None]
  - DELIRIUM [None]
  - LABORATORY TEST ABNORMAL [None]
  - NEUTROPENIA [None]
  - WHITE BLOOD CELL COUNT DECREASED [None]
